FAERS Safety Report 8238702-1 (Version None)
Quarter: 2012Q1

REPORT INFORMATION
  Report Type: 
  Country: None (occurrence: None)
  Receive Date: 20120327
  Receipt Date: 20120320
  Transmission Date: 20120608
  Serious: Yes (Hospitalization, Other)
  Sender: FDA-Public Use
  Company Number: US-PFIZER INC-2012007954

PATIENT
  Sex: Male

DRUGS (2)
  1. DEPAKOTE [Concomitant]
     Dosage: 500 MG, 2 IN AM AND 1 IN PM
     Dates: start: 20050901
  2. EFFEXOR XR [Suspect]
     Indication: DEPRESSION
     Dosage: 75 MG, 2X/DAY
     Route: 048
     Dates: start: 20050901

REACTIONS (2)
  - INJURY [None]
  - ROAD TRAFFIC ACCIDENT [None]
